FAERS Safety Report 8345333-1 (Version None)
Quarter: 2012Q2

REPORT INFORMATION
  Report Type: 
  Country: None (occurrence: None)
  Receive Date: 20120504
  Receipt Date: 20120418
  Transmission Date: 20120825
  Serious: Yes (Other)
  Sender: FDA-Public Use
  Company Number: DSA_56301_2012

PATIENT
  Age: 26 Month
  Sex: Female

DRUGS (5)
  1. BACTRIM [Concomitant]
  2. AZATHIOPRINE [Concomitant]
  3. TACROLIMUS [Concomitant]
  4. PRAVASTATIN [Concomitant]
  5. ENALAPRIL MALEATE [Suspect]
     Indication: RENAL HYPERTENSION
     Dosage: 1 MG BID ORAL
     Route: 048
     Dates: start: 20110308, end: 20110318

REACTIONS (9)
  - DYSTONIA [None]
  - ABNORMAL BEHAVIOUR [None]
  - AGGRESSION [None]
  - HYPERTONIA [None]
  - PRODUCT TASTE ABNORMAL [None]
  - FAMILY STRESS [None]
  - MUSCLE TWITCHING [None]
  - WRONG TECHNIQUE IN DRUG USAGE PROCESS [None]
  - TREATMENT NONCOMPLIANCE [None]
